FAERS Safety Report 14858065 (Version 1)
Quarter: 2018Q2

REPORT INFORMATION
  Report Type: Spontaneous
  Country: IT (occurrence: IT)
  Receive Date: 20180508
  Receipt Date: 20180508
  Transmission Date: 20180711
  Serious: Yes (Other)
  Sender: FDA-Public Use
  Company Number: IT-SUN PHARMACEUTICAL INDUSTRIES LTD-2018RR-171955

PATIENT
  Age: 92 Year
  Sex: Female
  Weight: 47 kg

DRUGS (2)
  1. AMIODAR 200 MG COMPRESSE [Concomitant]
     Indication: ATRIAL FIBRILLATION
     Route: 048
  2. PAROXETINE. [Suspect]
     Active Substance: PAROXETINE
     Indication: MAJOR DEPRESSION
     Dosage: TABLET
     Route: 065

REACTIONS (1)
  - Electrocardiogram QT prolonged [Recovered/Resolved]

NARRATIVE: CASE EVENT DATE: 20180221
